FAERS Safety Report 24844720 (Version 1)
Quarter: 2025Q1

REPORT INFORMATION
  Report Type: Report from Study
  Country: NL (occurrence: NL)
  Receive Date: 20250115
  Receipt Date: 20250115
  Transmission Date: 20250408
  Serious: Yes (Other)
  Sender: BIOVITRUM
  Company Number: NL-AstraZeneca-CH-00782544A

PATIENT
  Age: 32 Week
  Sex: Male
  Weight: 5.925 kg

DRUGS (4)
  1. SYNAGIS [Suspect]
     Active Substance: PALIVIZUMAB
     Indication: Product used for unknown indication
     Route: 030
     Dates: start: 20241017
  2. MEDICINALE VLOEIBARE ZUURSTOF OXYCURE [Concomitant]
     Indication: Product used for unknown indication
  3. FERROFUMARAAT ACTAVIS [Concomitant]
     Indication: Product used for unknown indication
  4. LACTULOSESTROOP [Concomitant]
     Indication: Product used for unknown indication

REACTIONS (3)
  - Nasopharyngitis [Recovered/Resolved]
  - Moaning [Recovered/Resolved]
  - Pyrexia [Recovered/Resolved]

NARRATIVE: CASE EVENT DATE: 20241218
